FAERS Safety Report 8111083-X (Version None)
Quarter: 2012Q1

REPORT INFORMATION
  Report Type: 
  Country: None (occurrence: None)
  Receive Date: 20120203
  Receipt Date: 20110406
  Transmission Date: 20120608
  Serious: No
  Sender: FDA-Public Use
  Company Number: US-GLAXOSMITHKLINE-A0921660A

PATIENT
  Age: 33 Year
  Sex: Male

DRUGS (3)
  1. LAMICTAL [Suspect]
     Indication: DEPRESSED MOOD
     Dosage: 50MG PER DAY
     Route: 048
     Dates: start: 20110101
  2. ADDERALL XR 10 [Concomitant]
  3. LEXAPRO [Concomitant]

REACTIONS (1)
  - RASH PRURITIC [None]
